FAERS Safety Report 17727498 (Version 2)
Quarter: 2020Q3

REPORT INFORMATION
  Report Type: Spontaneous
  Country: US (occurrence: US)
  Receive Date: 20200430
  Receipt Date: 20200917
  Transmission Date: 20201102
  Serious: No
  Sender: FDA-Public Use
  Company Number: US-PFIZER INC-2020172736

PATIENT
  Age: 69 Year
  Sex: Female

DRUGS (1)
  1. IBRANCE [Suspect]
     Active Substance: PALBOCICLIB
     Dosage: 125 MG
     Dates: start: 20200408, end: 20200916

REACTIONS (3)
  - Nausea [Unknown]
  - Alopecia [Unknown]
  - Vomiting [Unknown]

NARRATIVE: CASE EVENT DATE: 202004
